FAERS Safety Report 5556883-5 (Version None)
Quarter: 2007Q4

REPORT INFORMATION
  Report Type: 
  Country: None (occurrence: None)
  Receive Date: 20071214
  Receipt Date: 20071205
  Transmission Date: 20080405
  Serious: Yes (Hospitalization)
  Sender: FDA-Public Use
  Company Number: ES-ABBOTT-07P-144-0427389-00

PATIENT
  Age: 55 Year
  Sex: Male
  Weight: 70 kg

DRUGS (3)
  1. HUMIRA [Suspect]
     Indication: RHEUMATOID ARTHRITIS
     Route: 058
     Dates: start: 20060601, end: 20071129
  2. METHOTREXATE [Concomitant]
     Indication: RHEUMATOID ARTHRITIS
     Route: 048
  3. CORTICOIDS [Concomitant]
     Indication: RHEUMATOID ARTHRITIS
     Dosage: LOW DOSES (TOTAL DAILY DOSE)
     Route: 048

REACTIONS (5)
  - COUGH [None]
  - DIARRHOEA [None]
  - MALAISE [None]
  - PYREXIA [None]
  - WEIGHT DECREASED [None]
